FAERS Safety Report 8416187-X (Version None)
Quarter: 2012Q2

REPORT INFORMATION
  Report Type: 
  Country: None (occurrence: None)
  Receive Date: 20120606
  Receipt Date: 20120528
  Transmission Date: 20120825
  Serious: Yes (Hospitalization, Other)
  Sender: FDA-Public Use
  Company Number: PHHY2012BR045377

PATIENT
  Sex: Male

DRUGS (7)
  1. AMOXICILLIN AND CLAVULANATE POTASSIUM [Concomitant]
  2. FORMOTEROL FUMARATE [Suspect]
  3. BACTRIM [Concomitant]
     Indication: PNEUMONIA
  4. BACTRIM [Concomitant]
     Indication: URINARY TRACT INFECTION
  5. ONBREZ [Suspect]
     Indication: EMPHYSEMA
     Dosage: 1 DF, QD
  6. CAPTOPRIL [Concomitant]
     Indication: BLOOD PRESSURE INCREASED
  7. DIGOXIN [Concomitant]

REACTIONS (7)
  - DECREASED APPETITE [None]
  - CHEST DISCOMFORT [None]
  - ASTHENIA [None]
  - DYSPNOEA [None]
  - DYSURIA [None]
  - BLADDER NEOPLASM [None]
  - PNEUMONIA [None]
